FAERS Safety Report 9164545 (Version 1)
Quarter: 2013Q1

REPORT INFORMATION
  Report Type: Spontaneous
  Country: US (occurrence: US)
  Receive Date: 20130315
  Receipt Date: 20130315
  Transmission Date: 20140127
  Serious: Yes (Hospitalization)
  Sender: FDA-Public Use
  Company Number: PHEH2013US005948

PATIENT
  Age: 81 Year
  Sex: Male
  Weight: 79.37 kg

DRUGS (10)
  1. AFINITOR [Suspect]
     Indication: RENAL CANCER
     Dosage: 10 MG, DAILY
     Route: 048
  2. LIPITOR [Concomitant]
     Dosage: 20 MG, UNK
     Route: 048
  3. CIALIS [Concomitant]
     Dosage: 2.5 MG, UNK
     Route: 048
  4. COMBIVENT [Concomitant]
  5. OMEGA 3 [Concomitant]
     Dosage: 1000 MG, UNK
     Route: 048
  6. ACETYLSALICYLIC ACID [Concomitant]
     Dosage: 81 MG, UNK
     Route: 048
  7. LEVOFLOXACIN [Concomitant]
     Dosage: 750 MG, UNK
     Route: 048
  8. PREDNISONE [Concomitant]
     Dosage: 10 MG, UNK
     Route: 048
  9. OMEPRAZOLE [Concomitant]
     Dosage: 20 MG, UNK
     Route: 048
  10. TEMAZEPAM [Concomitant]
     Dosage: 7.5 MG, UNK
     Route: 048

REACTIONS (3)
  - Lung disorder [Recovered/Resolved]
  - Dehydration [Recovered/Resolved]
  - Dyspnoea [Recovered/Resolved]
